FAERS Safety Report 21310626 (Version 2)
Quarter: 2022Q3

REPORT INFORMATION
  Report Type: Spontaneous
  Country: US (occurrence: US)
  Receive Date: 20220909
  Receipt Date: 20220913
  Transmission Date: 20221026
  Serious: No
  Sender: FDA-Public Use
  Company Number: US-NOVARTISTESTPH-NVSC2022US203123

PATIENT
  Sex: Female

DRUGS (3)
  1. XIIDRA [Suspect]
     Active Substance: LIFITEGRAST
     Indication: Vision blurred
     Dosage: 50 MILLIGRAM PER MILLILITRE, BID, (DROP)
     Route: 065
     Dates: start: 20220829
  2. LETROZOLE [Concomitant]
     Active Substance: LETROZOLE
     Indication: Product used for unknown indication
     Dosage: UNK
     Route: 065
  3. PROLIA [Concomitant]
     Active Substance: DENOSUMAB
     Indication: Product used for unknown indication
     Dosage: UNK, (6 MONTHS) (ROUTE: SHOT)
     Route: 065

REACTIONS (2)
  - Lacrimation increased [Unknown]
  - Vision blurred [Unknown]
